FAERS Safety Report 4979622-5 (Version None)
Quarter: 2006Q2

REPORT INFORMATION
  Report Type: 
  Country: None (occurrence: None)
  Receive Date: 20060418
  Receipt Date: 20060407
  Transmission Date: 20061013
  Serious: Yes (Other)
  Sender: FDA-Public Use
  Company Number: FR200601002021

PATIENT
  Age: 43 Year
  Sex: Male
  Weight: 80 kg

DRUGS (12)
  1. XIGRIS [Suspect]
     Indication: SEPTIC SHOCK
     Dosage: 24 UG/KG/HR, DAILY (1/D), SUBCUTANEOUS
     Route: 058
     Dates: start: 20060111, end: 20060113
  2. DOBUTAMINE (DOBUTAMINE) [Concomitant]
  3. HYDROCORTISONE SODIUM SUCCINATE [Concomitant]
  4. MIDAZOLAM HCL [Concomitant]
  5. NORADRENALINE (NOREPINEPHRINE) [Concomitant]
  6. SUFENTANIL (SUFENTANIL) [Concomitant]
  7. NIMBEX [Concomitant]
  8. GLYPRESSINE (TERLIPRESSIN ACETATE) [Concomitant]
  9. METRONIDAZOLE [Concomitant]
  10. TAZOCILLINE (PIPERACILLIN SODIUM, TAZOBACTAM SODIUM) [Concomitant]
  11. LOVENOX [Concomitant]
  12. VECTARION (ALMITRINE DIMESILATE) [Concomitant]

REACTIONS (3)
  - ANAEMIA [None]
  - PERITONEAL HAEMORRHAGE [None]
  - THROMBOCYTOPENIA [None]
